FAERS Safety Report 9638006 (Version 1)
Quarter: 2013Q4

REPORT INFORMATION
  Report Type: Report from Study
  Country: AU (occurrence: AU)
  Receive Date: 20131022
  Receipt Date: 20131022
  Transmission Date: 20140711
  Serious: Yes (Hospitalization)
  Sender: FDA-Public Use
  Company Number: PHHY2013AU118171

PATIENT
  Sex: Female

DRUGS (5)
  1. ACLASTA [Suspect]
     Dosage: 5 MG, UNK
     Route: 042
     Dates: start: 20091210
  2. ACLASTA [Suspect]
     Dosage: 5 MG, UNK
     Route: 042
     Dates: start: 20121017
  3. OXYCONTIN [Concomitant]
     Dosage: 20 MG TO 10 MG
  4. NORSPAN//BUPRENORPHINE [Concomitant]
     Dosage: 5 MG, UNK
  5. CYMBALTA [Concomitant]
     Dosage: 90MG TO 30 MG

REACTIONS (5)
  - Altered state of consciousness [Recovering/Resolving]
  - Drug withdrawal syndrome [Recovering/Resolving]
  - Fall [Recovering/Resolving]
  - Laceration [Recovering/Resolving]
  - Contusion [Recovering/Resolving]
